FAERS Safety Report 19149172 (Version 1)
Quarter: 2021Q2

REPORT INFORMATION
  Report Type: Spontaneous
  Country: CN (occurrence: CN)
  Receive Date: 20210417
  Receipt Date: 20210417
  Transmission Date: 20210717
  Serious: Yes (Other)
  Sender: FDA-Public Use
  Company Number: CN-ROCHE-2808403

PATIENT
  Age: 66 Year
  Sex: Male

DRUGS (3)
  1. TECENTRIQ [Suspect]
     Active Substance: ATEZOLIZUMAB
     Dosage: T ALONE
     Route: 065
     Dates: start: 201909, end: 202011
  2. AVASTIN [Suspect]
     Active Substance: BEVACIZUMAB
     Indication: HEPATOCELLULAR CARCINOMA
     Dosage: T+A, ONCE PER 3WEEKS
     Route: 065
     Dates: start: 201903, end: 201909
  3. TECENTRIQ [Suspect]
     Active Substance: ATEZOLIZUMAB
     Indication: HEPATOCELLULAR CARCINOMA
     Dosage: T+A, ONCE PER 3WEEKS
     Route: 065
     Dates: start: 201903

REACTIONS (6)
  - Off label use [Unknown]
  - Hypertension [Unknown]
  - Constipation [Recovering/Resolving]
  - Rash [Recovering/Resolving]
  - Proteinuria [Unknown]
  - Pruritus [Recovering/Resolving]

NARRATIVE: CASE EVENT DATE: 20200508
